FAERS Safety Report 23611486 (Version 1)
Quarter: 2024Q1

REPORT INFORMATION
  Report Type: Spontaneous
  Country: US (occurrence: US)
  Receive Date: 20240308
  Receipt Date: 20240308
  Transmission Date: 20240410
  Serious: No
  Sender: FDA-Public Use
  Company Number: US-BIOVITRUM-2023-US-012047

PATIENT
  Age: 77 Year
  Sex: Female

DRUGS (2)
  1. KINERET [Suspect]
     Active Substance: ANAKINRA
     Indication: Rheumatoid arthritis
     Dosage: 100MG, ONCE DAILY
     Route: 058
     Dates: end: 20230609
  2. KINERET [Suspect]
     Active Substance: ANAKINRA
     Dosage: 100MG, ONCE DAILY
     Route: 058
     Dates: start: 20231107

REACTIONS (4)
  - Bronchitis [Unknown]
  - Intentional dose omission [Unknown]
  - Product use issue [Unknown]
  - Illness [Unknown]
